FAERS Safety Report 23230758 (Version 1)
Quarter: 2023Q4

REPORT INFORMATION
  Report Type: Spontaneous
  Country: US (occurrence: US)
  Receive Date: 20231127
  Receipt Date: 20231127
  Transmission Date: 20240109
  Serious: No
  Sender: FDA-Public Use
  Company Number: US-SA-SAC20231123000015

PATIENT
  Sex: Female
  Weight: 79.378 kg

DRUGS (12)
  1. DUPIXENT [Suspect]
     Active Substance: DUPILUMAB
     Indication: Nasal polyps
     Dosage: 300 MG, QOW
     Route: 058
     Dates: start: 20220215
  2. ADVIL [Concomitant]
     Active Substance: IBUPROFEN
  3. PREDNISOLONE [Concomitant]
     Active Substance: PREDNISOLONE
  4. AZELASTINE HYDROCHLORIDE\FLUTICASONE PROPIONATE [Concomitant]
     Active Substance: AZELASTINE HYDROCHLORIDE\FLUTICASONE PROPIONATE
  5. ALEVE [Concomitant]
     Active Substance: NAPROXEN SODIUM
  6. ALBUTEROL SULFATE [Concomitant]
     Active Substance: ALBUTEROL SULFATE
  7. MODERNA COVID-19 VACCINE [Concomitant]
     Active Substance: ELASOMERAN
  8. PEPCID [Concomitant]
     Active Substance: FAMOTIDINE
  9. BREZTRI [Concomitant]
     Active Substance: BUDESONIDE\FORMOTEROL\GLYCOPYRROLATE
  10. CLARITIN [Concomitant]
     Active Substance: LORATADINE
  11. FLUAD QUAD [Concomitant]
  12. VICKS BABY RUB [Concomitant]

REACTIONS (2)
  - Rhinorrhoea [Unknown]
  - Cough [Unknown]
